FAERS Safety Report 17136379 (Version 10)
Quarter: 2021Q1

REPORT INFORMATION
  Report Type: Report from Study
  Country: MX (occurrence: MX)
  Receive Date: 20191210
  Receipt Date: 20210208
  Transmission Date: 20210419
  Serious: Yes (Life-Threatening, Hospitalization, Other)
  Sender: FDA-Public Use
  Company Number: NVSC2019MX063778

PATIENT
  Age: 74 Year
  Sex: Male
  Weight: 70 kg

DRUGS (10)
  1. BIOFILEN [Concomitant]
     Indication: HYPERTENSION
     Dosage: 50 MG, QD (AFTERNOON) (STARTED A YEAR AND HALF AGO)
     Route: 048
  2. TAVOR [Concomitant]
     Indication: URINARY INCONTINENCE
     Dosage: 1 DF, QD
     Route: 048
     Dates: start: 201910
  3. VALSARTAN. [Suspect]
     Active Substance: VALSARTAN
     Indication: HYPERTENSION
     Dosage: 1 DF, QD
     Route: 065
     Dates: start: 2017, end: 2018
  4. TENORMIN [Concomitant]
     Active Substance: ATENOLOL
     Indication: PRODUCT USED FOR UNKNOWN INDICATION
     Dosage: UNK
     Route: 065
  5. EXFORGE [Suspect]
     Active Substance: AMLODIPINE BESYLATE\VALSARTAN
     Dosage: 1 DF, QD (5/160 MG)
     Route: 048
     Dates: start: 2017
  6. BIOFILEN [Concomitant]
     Dosage: 0.5 DF, QD (STARTED 1 YEAR AGO)
     Route: 065
  7. EXFORGE [Suspect]
     Active Substance: AMLODIPINE BESYLATE\VALSARTAN
     Dosage: 1 DF, QD (AMLODIPINE BESILATE 5 MG, VALSARTAN 160 MG) STARTED 1 AND HALF YEAR AGO
     Route: 048
  8. METFORMIN [Concomitant]
     Active Substance: METFORMIN HYDROCHLORIDE
     Indication: DIABETES MELLITUS
     Dosage: 0.5 DF, QD (850MG)
     Route: 048
     Dates: start: 2014
  9. TRAMADOL. [Concomitant]
     Active Substance: TRAMADOL
     Indication: PRODUCT USED FOR UNKNOWN INDICATION
     Dosage: UNK
     Route: 065
  10. EXFORGE [Suspect]
     Active Substance: AMLODIPINE BESYLATE\VALSARTAN
     Indication: HYPERTENSION
     Dosage: 1 DF, QD (MORNING) (AMLODIPINE BESILATE 5 MG, VALSARTAN 160 MG) STARTED 3 YEARS AGO APPROXIMATELY
     Route: 048

REACTIONS (22)
  - Urticaria [Unknown]
  - Blood pressure increased [Unknown]
  - Off label use [Unknown]
  - Blood triglycerides increased [Recovered/Resolved]
  - Throat irritation [Unknown]
  - Listless [Unknown]
  - Nervousness [Unknown]
  - Product prescribing error [Unknown]
  - Feeling abnormal [Unknown]
  - Blood uric acid increased [Recovered/Resolved]
  - Pain in extremity [Unknown]
  - Blood pressure fluctuation [Not Recovered/Not Resolved]
  - Anxiety [Not Recovered/Not Resolved]
  - Stress [Not Recovered/Not Resolved]
  - Fungal infection [Unknown]
  - Malaise [Unknown]
  - Decreased appetite [Unknown]
  - Blood pressure increased [Recovered/Resolved]
  - Depression [Not Recovered/Not Resolved]
  - Blood pressure increased [Recovered/Resolved]
  - Blood glucose increased [Unknown]
  - Blood pressure decreased [Unknown]

NARRATIVE: CASE EVENT DATE: 201910
